FAERS Safety Report 19930835 (Version 34)
Quarter: 2024Q3

REPORT INFORMATION
  Report Type: Spontaneous
  Country: CA (occurrence: CA)
  Receive Date: 20211008
  Receipt Date: 20240718
  Transmission Date: 20241016
  Serious: Yes (Other)
  Sender: CELLTRION
  Company Number: CA-CELLTRION INC.-2021CA005532

PATIENT

DRUGS (24)
  1. INFLECTRA [Suspect]
     Active Substance: INFLIXIMAB-DYYB
     Indication: Rheumatoid arthritis
     Dosage: 8 MG/KG EVERY 4 WEEKS
     Route: 042
     Dates: start: 20210519
  2. INFLECTRA [Suspect]
     Active Substance: INFLIXIMAB-DYYB
     Indication: Juvenile idiopathic arthritis
     Dosage: 8 MG/KG EVERY 4 WEEKS
     Route: 042
     Dates: start: 20210714
  3. INFLECTRA [Suspect]
     Active Substance: INFLIXIMAB-DYYB
     Dosage: 8 MG/KG EVERY 4 WEEKS
     Route: 042
     Dates: start: 20211103, end: 20211103
  4. INFLECTRA [Suspect]
     Active Substance: INFLIXIMAB-DYYB
     Dosage: 8 MG/KG EVERY 4 WEEKS
     Route: 042
     Dates: start: 20220126
  5. INFLECTRA [Suspect]
     Active Substance: INFLIXIMAB-DYYB
     Dosage: 8 MG/KG EVERY 4 WEEKS
     Route: 042
     Dates: start: 20220323, end: 20220323
  6. INFLECTRA [Suspect]
     Active Substance: INFLIXIMAB-DYYB
     Dosage: 8 MG/KG EVERY 4 WEEKS
     Route: 042
     Dates: start: 20220420
  7. INFLECTRA [Suspect]
     Active Substance: INFLIXIMAB-DYYB
     Dosage: 8 MG/KG EVERY 4 WEEKS
     Route: 042
     Dates: start: 20220518
  8. INFLECTRA [Suspect]
     Active Substance: INFLIXIMAB-DYYB
     Dosage: 8 MG/KG EVERY 4 WEEKS
     Route: 042
     Dates: start: 20220706
  9. INFLECTRA [Suspect]
     Active Substance: INFLIXIMAB-DYYB
     Dosage: 8 MG/KG EVERY 4 WEEKS
     Route: 042
     Dates: start: 20220802
  10. INFLECTRA [Suspect]
     Active Substance: INFLIXIMAB-DYYB
     Dosage: 8 MG/KG EVERY 4 WEEKS
     Route: 042
     Dates: start: 20221026
  11. INFLECTRA [Suspect]
     Active Substance: INFLIXIMAB-DYYB
     Dosage: 400 MG (SUPPOSED TO RECEIVE 8 MG/KG)
     Route: 042
     Dates: start: 20221123, end: 20221123
  12. INFLECTRA [Suspect]
     Active Substance: INFLIXIMAB-DYYB
     Dosage: 8 MG/KG EVERY 4 WEEKS
     Route: 042
     Dates: start: 20221221
  13. INFLECTRA [Suspect]
     Active Substance: INFLIXIMAB-DYYB
     Dosage: 416 MG (8 MG/KG ), EVERY 4 WEEKS
     Route: 042
     Dates: start: 20230419
  14. INFLECTRA [Suspect]
     Active Substance: INFLIXIMAB-DYYB
     Dosage: 424 MG EVERY 4 WEEK
     Route: 042
     Dates: start: 20230614, end: 20230614
  15. INFLECTRA [Suspect]
     Active Substance: INFLIXIMAB-DYYB
     Dosage: 416 MG EVERY 4 WEEK
     Route: 042
     Dates: start: 20230712, end: 20230712
  16. INFLECTRA [Suspect]
     Active Substance: INFLIXIMAB-DYYB
     Dosage: 400 MG (8 MG/KG), EVERY 4 WEEKS
     Route: 042
     Dates: start: 20230906, end: 20230906
  17. INFLECTRA [Suspect]
     Active Substance: INFLIXIMAB-DYYB
     Dosage: 392 MG (8 MG/KG), AFTER 6 WEEKS AND 6 DAYS (EVERY 4 WEEKS)
     Route: 042
     Dates: start: 20231024, end: 20231024
  18. INFLECTRA [Suspect]
     Active Substance: INFLIXIMAB-DYYB
     Dosage: 392 MG (8 MG/KG), AFTER 6 WEEKS AND 6 DAYS (EVERY 4 WEEKS)
     Route: 042
     Dates: start: 20231024
  19. INFLECTRA [Suspect]
     Active Substance: INFLIXIMAB-DYYB
     Dosage: 384 MG AFTER 8 WEEKS AND 1 DAY
     Route: 042
     Dates: start: 20231220
  20. INFLECTRA [Suspect]
     Active Substance: INFLIXIMAB-DYYB
     Dosage: 384 MG (8 MG/KG), AFTER 7 WEEKS (EVERY 4 WEEKS)
     Route: 042
     Dates: start: 20240207
  21. INFLECTRA [Suspect]
     Active Substance: INFLIXIMAB-DYYB
     Dosage: 8 MG/KG EVERY 4 WEEKS
     Route: 042
     Dates: start: 20240703
  22. HYDROXYCHLOROQUINE [Concomitant]
     Active Substance: HYDROXYCHLOROQUINE
     Dosage: 1 DF, DOSAGE NOT AVAILABLE
     Route: 065
     Dates: start: 2016
  23. PANTOPRAZOLE [Concomitant]
     Active Substance: PANTOPRAZOLE
     Dosage: 1 DF, DOSAGE NOT AVAILABLE
     Route: 065
  24. SULFASALAZINE [Concomitant]
     Active Substance: SULFASALAZINE
     Dosage: 1 DF, DOSAGE NOT AVAILABLE
     Route: 065
     Dates: start: 2016

REACTIONS (24)
  - Osteoarthritis [Unknown]
  - Arthrodesis [Unknown]
  - Infection [Recovered/Resolved]
  - Osteitis [Recovered/Resolved]
  - Cellulitis [Recovered/Resolved]
  - Clostridium difficile infection [Recovering/Resolving]
  - Condition aggravated [Not Recovered/Not Resolved]
  - Erythema [Not Recovered/Not Resolved]
  - Pruritus [Not Recovered/Not Resolved]
  - Skin exfoliation [Not Recovered/Not Resolved]
  - Skin burning sensation [Recovering/Resolving]
  - Feeling hot [Recovered/Resolved]
  - Fatigue [Recovered/Resolved]
  - COVID-19 [Recovered/Resolved]
  - C-reactive protein increased [Recovering/Resolving]
  - Perineal injury [Recovering/Resolving]
  - Blood pressure diastolic decreased [Unknown]
  - Nasopharyngitis [Recovering/Resolving]
  - Streptococcal infection [Recovered/Resolved]
  - Fine motor skill dysfunction [Unknown]
  - Arthralgia [Recovered/Resolved]
  - Off label use [Unknown]
  - Intentional product use issue [Unknown]
  - Maternal exposure during pregnancy [Unknown]

NARRATIVE: CASE EVENT DATE: 20210701
